FAERS Safety Report 20755030 (Version 1)
Quarter: 2022Q2

REPORT INFORMATION
  Report Type: Spontaneous
  Country: DE (occurrence: None)
  Receive Date: 20220427
  Receipt Date: 20220427
  Transmission Date: 20220721
  Serious: Yes (Other)
  Sender: FDA-Public Use
  Company Number: 2022A154257

PATIENT
  Sex: Female

DRUGS (3)
  1. LYNPARZA [Suspect]
     Active Substance: OLAPARIB
     Indication: Ovarian cancer
     Dosage: 2X/DAY (EVERY 12 HOURS)
     Route: 048
     Dates: start: 2018
  2. PAXLOVID [Suspect]
     Active Substance: NIRMATRELVIR\RITONAVIR
     Indication: COVID-19 treatment
     Route: 065
  3. PAXLOVID [Suspect]
     Active Substance: NIRMATRELVIR\RITONAVIR
     Indication: COVID-19 treatment
     Route: 065

REACTIONS (8)
  - COVID-19 [Unknown]
  - Pyrexia [Recovering/Resolving]
  - Listless [Unknown]
  - Fatigue [Recovering/Resolving]
  - Dysphonia [Unknown]
  - Asthenia [Recovering/Resolving]
  - Drug interaction [Unknown]
  - Drug ineffective [Unknown]
